FAERS Safety Report 8847561 (Version 1)
Quarter: 2012Q4

REPORT INFORMATION
  Report Type: 
  Country: US (occurrence: US)
  Receive Date: 20121018
  Receipt Date: 20121018
  Transmission Date: 20130627
  Serious: No
  Sender: FDA-Public Use
  Company Number: US-MYLANLABS-2012S1001242

PATIENT
  Age: 8 Year
  Sex: Male
  Weight: 27.22 kg

DRUGS (4)
  1. RISPERIDONE [Suspect]
     Indication: DEPRESSION
     Route: 048
     Dates: start: 201201, end: 201201
  2. RISPERIDONE [Suspect]
     Indication: ABNORMAL BEHAVIOUR
     Route: 048
     Dates: start: 201201, end: 201201
  3. VITAMIN [Concomitant]
     Route: 048
  4. DHA [Concomitant]
     Route: 048

REACTIONS (6)
  - Drug ineffective for unapproved indication [Recovered/Resolved]
  - Depression [Recovered/Resolved]
  - Paranoia [Recovered/Resolved]
  - Nervousness [Recovered/Resolved]
  - Anger [Recovered/Resolved]
  - Agitation [Recovered/Resolved]
